FAERS Safety Report 15699808 (Version 1)
Quarter: 2018Q4

REPORT INFORMATION
  Report Type: Spontaneous
  Country: US (occurrence: US)
  Receive Date: 20181207
  Receipt Date: 20181207
  Transmission Date: 20190205
  Serious: Yes (Hospitalization, Other)
  Sender: FDA-Public Use
  Company Number: US-OTSUKA-2018_016111

PATIENT
  Age: 50 Year
  Sex: Female

DRUGS (9)
  1. PROZAC [Concomitant]
     Active Substance: FLUOXETINE HYDROCHLORIDE
     Indication: PRODUCT USED FOR UNKNOWN INDICATION
     Dosage: 40 MG, QD
     Route: 065
  2. MECLIZINE [Concomitant]
     Active Substance: MECLIZINE HYDROCHLORIDE
     Indication: PRODUCT USED FOR UNKNOWN INDICATION
     Dosage: 25 MG, TID (PRN)
     Route: 065
  3. CLONAZEPAM. [Concomitant]
     Active Substance: CLONAZEPAM
     Indication: PRODUCT USED FOR UNKNOWN INDICATION
     Dosage: 1 MG, QD
     Route: 065
  4. ABILIFY [Suspect]
     Active Substance: ARIPIPRAZOLE
     Indication: ADJUVANT THERAPY
  5. ABILIFY [Suspect]
     Active Substance: ARIPIPRAZOLE
     Indication: MAJOR DEPRESSION
     Dosage: 2-10MG, QD
     Route: 065
  6. ABILIFY [Suspect]
     Active Substance: ARIPIPRAZOLE
     Indication: ANXIETY
     Dosage: 5 MG, QD
     Route: 065
  7. DESIPRAMINE [Concomitant]
     Active Substance: DESIPRAMINE
     Indication: PRODUCT USED FOR UNKNOWN INDICATION
     Dosage: 20 MG, BID
     Route: 065
  8. HYDROCHLOROTHIAZIDE. [Concomitant]
     Active Substance: HYDROCHLOROTHIAZIDE
     Indication: PRODUCT USED FOR UNKNOWN INDICATION
     Dosage: 12.5 MG, QD
     Route: 065
  9. LORAZEPAM. [Concomitant]
     Active Substance: LORAZEPAM
     Indication: PRODUCT USED FOR UNKNOWN INDICATION
     Dosage: 5 MG, BID
     Route: 065

REACTIONS (23)
  - Suicidal ideation [Unknown]
  - Injury [Unknown]
  - Apathy [Unknown]
  - Panic attack [Unknown]
  - Drug effect incomplete [Unknown]
  - Anhedonia [Unknown]
  - Vertigo [Unknown]
  - Depression [Unknown]
  - Disturbance in attention [Unknown]
  - Weight increased [Unknown]
  - Eating disorder [Recovered/Resolved]
  - Gambling disorder [Recovered/Resolved]
  - Tremor [Unknown]
  - Product use in unapproved indication [Unknown]
  - Bankruptcy [Unknown]
  - Hospitalisation [Unknown]
  - Neuropsychiatric symptoms [Unknown]
  - Crying [Unknown]
  - Insomnia [Unknown]
  - Economic problem [Unknown]
  - Emotional distress [Unknown]
  - Confusional state [Unknown]
  - Impaired work ability [Unknown]

NARRATIVE: CASE EVENT DATE: 2013
